FAERS Safety Report 24005940 (Version 1)
Quarter: 2024Q2

REPORT INFORMATION
  Report Type: Spontaneous
  Country: FR (occurrence: FR)
  Receive Date: 20240624
  Receipt Date: 20240624
  Transmission Date: 20240716
  Serious: Yes (Hospitalization)
  Sender: FDA-Public Use
  Company Number: None

PATIENT
  Age: 63 Year
  Sex: Male
  Weight: 70 kg

DRUGS (4)
  1. MESNA [Suspect]
     Active Substance: MESNA
     Indication: Prophylaxis
     Dosage: 8650 MG, ONE TOTAL
     Route: 042
     Dates: start: 20240518, end: 20240519
  2. IFOSFAMIDE [Suspect]
     Active Substance: IFOSFAMIDE
     Indication: Angioimmunoblastic T-cell lymphoma
     Dosage: 8640 MG, ONE TOTAL
     Route: 042
     Dates: start: 20240518, end: 20240519
  3. CARBOPLATIN [Concomitant]
     Active Substance: CARBOPLATIN
     Indication: Angioimmunoblastic T-cell lymphoma
     Dosage: 780 MG, ONE TOTAL
     Route: 042
     Dates: start: 20240518, end: 20240518
  4. ETOPOSIDE [Concomitant]
     Active Substance: ETOPOSIDE
     Indication: Angioimmunoblastic T-cell lymphoma
     Dosage: 172 MG, ONCE IN ONE DAY
     Route: 042
     Dates: start: 20240517, end: 20240518

REACTIONS (1)
  - Stress cardiomyopathy [Recovered/Resolved]

NARRATIVE: CASE EVENT DATE: 20240519
